FAERS Safety Report 4323746-2 (Version None)
Quarter: 2004Q1

REPORT INFORMATION
  Report Type: 
  Country: None (occurrence: None)
  Receive Date: 20040323
  Receipt Date: 20021225
  Transmission Date: 20041129
  Serious: Yes (Hospitalization, Disabling)
  Sender: FDA-Public Use
  Company Number: 2002138994JP

PATIENT
  Age: 30 Year
  Sex: Female
  Weight: 151 kg

DRUGS (1)
  1. SOMATROPIN VS PLACEBO (SOMATROPIN VS PLACEBO) POWDER, STERILE [Suspect]
     Indication: HYPOPITUITARISM
     Dosage: 0.8 MG, QD, SUBCUTANEOUS
     Route: 058
     Dates: start: 20020809, end: 20021213

REACTIONS (4)
  - DIZZINESS [None]
  - GASTROENTERITIS [None]
  - HEADACHE [None]
  - SUDDEN HEARING LOSS [None]
